FAERS Safety Report 7853922-3 (Version None)
Quarter: 2011Q4

REPORT INFORMATION
  Report Type: 
  Country: None (occurrence: None)
  Receive Date: 20111026
  Receipt Date: 20111021
  Transmission Date: 20120403
  Serious: No
  Sender: FDA-Public Use
  Company Number: US-PFIZER INC-2011255431

PATIENT
  Sex: Female
  Weight: 48.98 kg

DRUGS (5)
  1. SEROQUEL [Concomitant]
     Indication: DEPRESSION
     Dosage: UNK
  2. NEURONTIN [Concomitant]
     Dosage: UNK
  3. CHANTIX [Suspect]
     Indication: SMOKING CESSATION THERAPY
     Dosage: 0.5 MG, 1X/DAY
     Route: 048
     Dates: start: 20111006, end: 20111001
  4. CHANTIX [Suspect]
     Dosage: UNK
     Route: 048
     Dates: start: 20111001, end: 20111018
  5. VICODIN [Concomitant]
     Indication: PAIN
     Dosage: UNK

REACTIONS (7)
  - NAUSEA [None]
  - PAIN [None]
  - WEIGHT INCREASED [None]
  - INCREASED APPETITE [None]
  - INSOMNIA [None]
  - RASH [None]
  - DIARRHOEA [None]
